FAERS Safety Report 23161112 (Version 1)
Quarter: 2023Q4

REPORT INFORMATION
  Report Type: Spontaneous
  Country: CN (occurrence: CN)
  Receive Date: 20231108
  Receipt Date: 20231108
  Transmission Date: 20240110
  Serious: Yes (Hospitalization, Other)
  Sender: FDA-Public Use
  Company Number: CN-PFIZER INC-PV202300179926

PATIENT
  Age: 59 Year
  Sex: Female
  Weight: 54.1 kg

DRUGS (4)
  1. METHYLPREDNISOLONE [Suspect]
     Active Substance: METHYLPREDNISOLONE
     Indication: Systemic lupus erythematosus
     Dosage: 12 MG, 1X/DAY
     Route: 048
     Dates: start: 20050101, end: 20230605
  2. PREDNISONE ACETATE [Suspect]
     Active Substance: PREDNISONE ACETATE
     Indication: Systemic lupus erythematosus
     Dosage: 30 MG, 1X/DAY
     Route: 048
     Dates: start: 19990101, end: 20050101
  3. PROGRAF [Concomitant]
     Active Substance: TACROLIMUS
     Indication: Lupus nephritis
     Dosage: 0.5 MG, 1X/DAY
     Route: 048
     Dates: start: 20050101, end: 20231031
  4. CELLCEPT [Concomitant]
     Active Substance: MYCOPHENOLATE MOFETIL
     Indication: Lupus nephritis
     Dosage: 0.5 G, 2X/DAY
     Route: 048
     Dates: start: 20050101, end: 20231031

REACTIONS (1)
  - Osteoporotic fracture [Unknown]

NARRATIVE: CASE EVENT DATE: 20230606
